FAERS Safety Report 26155642 (Version 1)
Quarter: 2025Q4

REPORT INFORMATION
  Report Type: Spontaneous
  Country: EU (occurrence: EU)
  Receive Date: 20251215
  Receipt Date: 20251215
  Transmission Date: 20260118
  Serious: No
  Sender: ALKEM
  Company Number: EU-ALKEM LABORATORIES LIMITED-GR-ALKEM-2025-04764

PATIENT
  Age: 20 Year
  Sex: Female

DRUGS (1)
  1. TACROLIMUS [Suspect]
     Active Substance: TACROLIMUS
     Indication: Atopic keratoconjunctivitis
     Dosage: UNK, BID (OINTMENT, TWICE DAILY)
     Route: 061

REACTIONS (2)
  - Limbal stem cell deficiency [Recovered/Resolved]
  - Off label use [Unknown]
